FAERS Safety Report 13974522 (Version 1)
Quarter: 2017Q3

REPORT INFORMATION
  Report Type: Report from Study
  Country: US (occurrence: US)
  Receive Date: 20170915
  Receipt Date: 20170915
  Transmission Date: 20171128
  Serious: Yes (Other)
  Sender: FDA-Public Use
  Company Number: US-EISAI MEDICAL RESEARCH-EC-2017-027779

PATIENT
  Age: 59 Year
  Sex: Female

DRUGS (14)
  1. LENVIMA [Suspect]
     Active Substance: LENVATINIB
     Route: 048
     Dates: start: 201708
  2. BYDUREON [Concomitant]
     Active Substance: EXENATIDE
  3. METFORMIN [Concomitant]
     Active Substance: METFORMIN HYDROCHLORIDE
  4. LOSARTAN-HCTZ [Concomitant]
     Active Substance: HYDROCHLOROTHIAZIDE\LOSARTAN
  5. ESTRADIOL-NORETHINDRONE [Concomitant]
  6. LENVIMA [Suspect]
     Active Substance: LENVATINIB
     Route: 048
     Dates: start: 2017, end: 2017
  7. TRESIBA [Concomitant]
     Active Substance: INSULIN DEGLUDEC
  8. DESOXIMETASONE. [Concomitant]
     Active Substance: DESOXIMETASONE
  9. LENVIMA [Suspect]
     Active Substance: LENVATINIB
     Indication: THYROID CANCER
     Route: 048
     Dates: start: 20170503, end: 2017
  10. JARDIANCE [Concomitant]
     Active Substance: EMPAGLIFLOZIN
  11. VASCEPA [Concomitant]
     Active Substance: ICOSAPENT ETHYL
  12. LENVIMA [Suspect]
     Active Substance: LENVATINIB
     Route: 048
     Dates: start: 2017, end: 201708
  13. GLIPIZIDE. [Concomitant]
     Active Substance: GLIPIZIDE
  14. ATORVASTATIN [Concomitant]
     Active Substance: ATORVASTATIN

REACTIONS (17)
  - Cholecystitis [Unknown]
  - Fatigue [Unknown]
  - Hypertension [Unknown]
  - Dry skin [Not Recovered/Not Resolved]
  - Psoriasis [Unknown]
  - Diarrhoea [Unknown]
  - Diarrhoea [Not Recovered/Not Resolved]
  - Dysphonia [Unknown]
  - Dysmenorrhoea [Not Recovered/Not Resolved]
  - Acne [Unknown]
  - Paraesthesia oral [Unknown]
  - Headache [Not Recovered/Not Resolved]
  - Rash pruritic [Unknown]
  - Nausea [Unknown]
  - Vaginal haemorrhage [Unknown]
  - Alopecia [Unknown]
  - Pruritus [Unknown]

NARRATIVE: CASE EVENT DATE: 2017
